FAERS Safety Report 4984961-8 (Version None)
Quarter: 2006Q2

REPORT INFORMATION
  Report Type: 
  Country: None (occurrence: None)
  Receive Date: 20060426
  Receipt Date: 20060426
  Transmission Date: 20061013
  Serious: Yes (Hospitalization)
  Sender: FDA-Public Use
  Company Number: None

PATIENT
  Age: 53 Year
  Sex: Female

DRUGS (7)
  1. QUININE [Suspect]
     Dosage: 1 TABLET   AT BEDTIME   ORALLY
     Route: 048
  2. ZOLOFT [Concomitant]
  3. QUINAPRIL [Concomitant]
  4. PREMARIN [Concomitant]
  5. NABUMETONE [Concomitant]
  6. MULTIPLE VITAMIN [Concomitant]
  7. L-CARNITINE [Concomitant]

REACTIONS (1)
  - THROMBOCYTOPENIA [None]
